FAERS Safety Report 6684608-9 (Version None)
Quarter: 2010Q2

REPORT INFORMATION
  Report Type: 
  Country: None (occurrence: None)
  Receive Date: 20100416
  Receipt Date: 20100402
  Transmission Date: 20101027
  Serious: Yes (Death, Hospitalization)
  Sender: FDA-Public Use
  Company Number: US-ROCHE-697563

PATIENT

DRUGS (5)
  1. BEVACIZUMAB [Suspect]
     Dosage: FREQ: OVER 30 TO 60 MIN ON DAY 1
     Route: 042
     Dates: start: 20100104
  2. PACLITAXEL [Suspect]
     Dosage: FREQ: OVER 3 HOURS ON DAY 1
     Route: 042
     Dates: start: 20100104
  3. TOPOTECAN [Suspect]
     Dosage: FREQ: OVER 30 MIN ON DAYS 1-3
     Route: 042
     Dates: start: 20100104
  4. OXYCODONE [Suspect]
     Indication: DRUG USE FOR UNKNOWN INDICATION
     Route: 065
  5. MIRALAX [Suspect]
     Indication: DRUG USE FOR UNKNOWN INDICATION
     Route: 065

REACTIONS (14)
  - ABDOMINAL PAIN [None]
  - BLOOD BILIRUBIN INCREASED [None]
  - BLOOD POTASSIUM DECREASED [None]
  - BLOOD SODIUM DECREASED [None]
  - COLONIC OBSTRUCTION [None]
  - DECREASED APPETITE [None]
  - GASTRITIS [None]
  - HAEMOGLOBIN DECREASED [None]
  - LARGE INTESTINE PERFORATION [None]
  - NAUSEA [None]
  - NEUTROPHIL COUNT DECREASED [None]
  - PLATELET COUNT DECREASED [None]
  - VOMITING [None]
  - WHITE BLOOD CELL COUNT DECREASED [None]
